FAERS Safety Report 11929592 (Version 1)
Quarter: 2016Q1

REPORT INFORMATION
  Report Type: Spontaneous
  Country: US (occurrence: None)
  Receive Date: 20160119
  Receipt Date: 20160119
  Transmission Date: 20160526
  Serious: Yes (Life-Threatening, Hospitalization, Disabling, Other)
  Sender: FDA-Public Use
  Company Number: None

PATIENT
  Age: 14 Year
  Sex: Male
  Weight: 163.3 kg

DRUGS (18)
  1. LISINOPRIL 40 MG LUPIN PHARMACE [Suspect]
     Active Substance: LISINOPRIL
     Indication: HYPERTENSION
     Route: 048
     Dates: start: 20100101, end: 20160117
  2. MOTRIN [Concomitant]
     Active Substance: IBUPROFEN
  3. ELECTRIC WHEELCHAIR [Concomitant]
  4. CLOTRIMAZOLE-BETAMETHASONE CREAM [Concomitant]
  5. CALCIUM [Concomitant]
     Active Substance: CALCIUM
  6. XOPENEX INHALER [Concomitant]
  7. VICTOZA [Concomitant]
     Active Substance: LIRAGLUTIDE
  8. LORATADINE. [Concomitant]
     Active Substance: LORATADINE
  9. VITAMIN D3 [Concomitant]
     Active Substance: CHOLECALCIFEROL
  10. MOTRIN [Concomitant]
     Active Substance: IBUPROFEN
  11. MONTELUKAST [Concomitant]
     Active Substance: MONTELUKAST SODIUM
  12. CLONIDINE. [Concomitant]
     Active Substance: CLONIDINE
  13. FENTANYL TRANSDERMAL SYSTEM [Concomitant]
     Active Substance: FENTANYL
  14. LINZESS [Concomitant]
     Active Substance: LINACLOTIDE
  15. TRAMADOL. [Concomitant]
     Active Substance: TRAMADOL
  16. STRATTERA [Concomitant]
     Active Substance: ATOMOXETINE HYDROCHLORIDE
  17. DIAZEPAM. [Concomitant]
     Active Substance: DIAZEPAM
  18. METFORMIN [Concomitant]
     Active Substance: METFORMIN HYDROCHLORIDE

REACTIONS (7)
  - Fall [None]
  - Pain [None]
  - Incontinence [None]
  - Headache [None]
  - Gastrointestinal disorder [None]
  - Muscle spasms [None]
  - Multiple fractures [None]

NARRATIVE: CASE EVENT DATE: 20100101
